FAERS Safety Report 6909358-2 (Version None)
Quarter: 2010Q3

REPORT INFORMATION
  Report Type: 
  Country: None (occurrence: None)
  Receive Date: 20100805
  Receipt Date: 20100726
  Transmission Date: 20110219
  Serious: Yes (Hospitalization)
  Sender: FDA-Public Use
  Company Number: ES-WATSON-2010-08985

PATIENT
  Age: 52 Year
  Sex: Male

DRUGS (5)
  1. METRONIDAZOLE [Suspect]
     Indication: ANTIBIOTIC THERAPY
     Dosage: UNK
  2. ATROPINE [Suspect]
     Indication: ANAESTHESIA
     Dosage: UNK
  3. SUCCINYLCHOLINE CHLORIDE [Suspect]
     Indication: ANAESTHESIA
     Dosage: UNK
  4. SEVOFLURANE [Suspect]
     Indication: ANAESTHESIA
     Dosage: UNK
  5. NEOSTIGMINE [Suspect]
     Indication: ANAESTHESIA
     Dosage: UNK

REACTIONS (3)
  - CARDIAC ARREST [None]
  - LONG QT SYNDROME [None]
  - TORSADE DE POINTES [None]
